FAERS Safety Report 5100193-7 (Version None)
Quarter: 2006Q3

REPORT INFORMATION
  Report Type: 
  Country: None (occurrence: None)
  Receive Date: 20060728
  Receipt Date: 20060105
  Transmission Date: 20061208
  Serious: No
  Sender: FDA-Public Use
  Company Number: 200609740

PATIENT
  Age: 75 Year
  Sex: Male
  Weight: 54.4316 kg

DRUGS (1)
  1. CARIMUNE [Suspect]
     Indication: GUILLAIN-BARRE SYNDROME
     Dosage: 22 G QD IV
     Route: 042
     Dates: start: 20051031, end: 20051105

REACTIONS (5)
  - ECZEMA [None]
  - PRURITUS [None]
  - RASH [None]
  - URTICARIA [None]
  - URTICARIA GENERALISED [None]
